FAERS Safety Report 8326194-3 (Version None)
Quarter: 2012Q2

REPORT INFORMATION
  Report Type: 
  Country: None (occurrence: None)
  Receive Date: 20120501
  Receipt Date: 20100616
  Transmission Date: 20120825
  Serious: No
  Sender: FDA-Public Use
  Company Number: US-TEVA-2010003310

PATIENT
  Sex: Female
  Weight: 86.26 kg

DRUGS (9)
  1. NUVIGIL [Suspect]
     Indication: SLEEP APNOEA SYNDROME
     Dosage: 150 MILLIGRAM;
     Route: 048
     Dates: start: 20100601, end: 20100610
  2. CYMBALTA [Concomitant]
  3. METFORMIN HCL [Concomitant]
     Dates: start: 20050101
  4. LEVOTHYROXINE SODIUM [Concomitant]
     Dates: start: 20050101
  5. HUMALOG [Concomitant]
  6. LANTUS [Concomitant]
  7. VITAMIN D [Concomitant]
  8. NUVIGIL [Suspect]
     Dosage: 250 MILLIGRAM;
     Route: 048
     Dates: start: 20100611
  9. MULTI-VITAMIN [Concomitant]

REACTIONS (3)
  - MUSCLE TWITCHING [None]
  - SPEECH DISORDER [None]
  - DRUG INEFFECTIVE [None]
